FAERS Safety Report 9206567 (Version 2)
Quarter: 2013Q4

REPORT INFORMATION
  Report Type: Spontaneous
  Country: US (occurrence: US)
  Receive Date: 20130403
  Receipt Date: 20131220
  Transmission Date: 20140711
  Serious: Yes (Hospitalization, Other)
  Sender: FDA-Public Use
  Company Number: US-BAYER-2013-040713

PATIENT
  Age: 20 Year
  Sex: Female

DRUGS (21)
  1. YAZ [Suspect]
     Dosage: UNK
     Dates: start: 2008, end: 2009
  2. YASMIN [Suspect]
     Dosage: UNK
     Dates: start: 2008, end: 2009
  3. XOPENEX [Concomitant]
     Dosage: UNK
     Dates: start: 20111024
  4. AMOXICILLIN [Concomitant]
     Dosage: 500 MG, UNK
     Dates: start: 20111109
  5. ROCEPHIN [Concomitant]
     Dosage: 1 G, UNK
     Dates: start: 20111109
  6. POTASSIUM CHLORIDE [Concomitant]
     Dosage: 10 MEQ, UNK
     Dates: end: 20111125
  7. AMITRIPTYLINE [Concomitant]
     Dosage: 10 MG, UNK
  8. HYDROXYZINE [Concomitant]
     Dosage: 10 MG, UNK
  9. ATARAX [Concomitant]
     Dosage: 10 MG, UNK
  10. IBUPROFEN [Concomitant]
     Dosage: 400 MG, UNK
  11. PROMETHAZINE [Concomitant]
     Dosage: 25 MG, UNK
  12. TRAMADOL [Concomitant]
     Dosage: 50 MG, UNK
  13. ELAVIL [Concomitant]
     Dosage: 10 MG, UNK
  14. PHENERGAN [Concomitant]
  15. LEVORA [Concomitant]
  16. NITROFURANTOIN [Concomitant]
  17. CIPRO [Concomitant]
  18. LORTAB [Concomitant]
  19. PYRIDIUM [Concomitant]
  20. PREVACID [Concomitant]
  21. FEMCON FE [Concomitant]

REACTIONS (7)
  - Gallbladder disorder [None]
  - Injury [None]
  - Pain [None]
  - Emotional distress [None]
  - Anxiety [None]
  - Anhedonia [None]
  - Cholecystitis chronic [None]
